FAERS Safety Report 7668476-4 (Version None)
Quarter: 2011Q3

REPORT INFORMATION
  Report Type: 
  Country: None (occurrence: None)
  Receive Date: 20110808
  Receipt Date: 20110725
  Transmission Date: 20111222
  Serious: Yes (Disabling, Other)
  Sender: FDA-Public Use
  Company Number: AU-CELGENEUS-008-50794-11070091

PATIENT
  Sex: Female
  Weight: 73 kg

DRUGS (67)
  1. VIDAZA [Suspect]
     Dosage: 136 MILLIGRAM
     Route: 065
     Dates: start: 20110606
  2. PANOBINOSTAT [Suspect]
     Route: 065
     Dates: start: 20110610
  3. OXYCONTIN [Concomitant]
     Indication: PAIN
     Dosage: 20 MILLIGRAM
     Route: 048
     Dates: end: 20110607
  4. CHOLECALCIFEROL [Concomitant]
     Indication: BONE DISORDER
     Dosage: 25 MICROGRAM
     Route: 048
     Dates: end: 20110606
  5. OXYCODONE HCL [Concomitant]
     Dosage: 5-10MG
     Route: 048
     Dates: start: 20110703
  6. METOCLOPRAMIDE [Concomitant]
     Indication: NAUSEA
     Dosage: 30 MILLIGRAM
     Route: 048
     Dates: start: 20110602, end: 20110615
  7. APREPITAN [Concomitant]
     Dosage: 80 MILLIGRAM
     Route: 048
     Dates: start: 20110626, end: 20110627
  8. PETER MAC MOUTHWASH [Concomitant]
     Dosage: 40 MILLIGRAM/MILLILITERS
     Route: 048
     Dates: start: 20110620
  9. FUROSEMIDE [Concomitant]
     Indication: FLUID OVERLOAD
     Dosage: 40 MILLIGRAM
     Route: 048
     Dates: start: 20110629, end: 20110701
  10. CLONAZEPAM [Concomitant]
     Dosage: 1 MILLIGRAM
     Route: 048
     Dates: start: 20110707
  11. PERINDOPRIL [Concomitant]
     Indication: HYPERTENSION
     Route: 048
     Dates: end: 20110628
  12. POSACONAZOLE [Concomitant]
     Indication: PROPHYLAXIS
     Dosage: 600 MILLIGRAM
     Route: 048
     Dates: start: 20110603, end: 20110707
  13. CYCLIZINE [Concomitant]
     Indication: NAUSEA
     Dosage: 50 MILLIGRAM
     Route: 058
     Dates: start: 20110610, end: 20110622
  14. FUROSEMIDE [Concomitant]
     Dosage: 40 MILLIGRAM
     Route: 041
     Dates: start: 20110703, end: 20110703
  15. LORATADINE [Concomitant]
     Indication: RASH
     Dosage: 10 MILLIGRAM
     Route: 048
     Dates: start: 20110627, end: 20110705
  16. ACETAMINOPHEN [Concomitant]
     Route: 048
     Dates: start: 20110622, end: 20110622
  17. OXYCONTIN [Concomitant]
     Dosage: 10 MILLIGRAM
     Route: 048
     Dates: start: 20110607, end: 20110623
  18. METOCLOPRAMIDE [Concomitant]
     Route: 048
     Dates: start: 20110615
  19. LACTULOSE [Concomitant]
     Indication: CONSTIPATION
     Dosage: 30 MILLIGRAM/MILLILITERS
     Route: 048
     Dates: start: 20110603, end: 20110622
  20. MOVIPREP [Concomitant]
     Indication: CONSTIPATION
     Dosage: 1 DOSAGE FORMS
     Route: 048
     Dates: start: 20110604, end: 20110606
  21. APREPITAN [Concomitant]
     Indication: NAUSEA
     Dosage: 125 MILLIGRAM
     Route: 048
     Dates: start: 20110617, end: 20110617
  22. APREPITAN [Concomitant]
     Dosage: 125 MILLIGRAM
     Route: 048
     Dates: start: 20110625, end: 20110625
  23. PROMETHAZINE [Concomitant]
     Indication: RASH
     Route: 041
     Dates: start: 20110624, end: 20110625
  24. AUGMENTIN DUO FORTE [Concomitant]
     Indication: PSEUDOMONAS INFECTION
     Dosage: 2 DOSAGE FORMS
     Route: 048
     Dates: start: 20110629, end: 20110629
  25. THYROXIN [Concomitant]
     Dosage: 75 MICROGRAM
     Route: 048
  26. SIMVASTATIN [Concomitant]
     Route: 048
     Dates: end: 20110607
  27. FUROSEMIDE [Concomitant]
     Route: 048
     Dates: start: 20110629, end: 20110629
  28. FUROSEMIDE [Concomitant]
     Dosage: 20 MILLIGRAM
     Route: 041
     Dates: start: 20110701, end: 20110704
  29. PIPERACILLIN AND TAZOBACTAM [Concomitant]
     Indication: SEPSIS
     Dosage: 13.5 MILLIGRAM
     Route: 041
     Dates: start: 20110630, end: 20110707
  30. CHLORVESCENT [Concomitant]
     Indication: HYPOKALAEMIA
     Route: 048
     Dates: start: 20110701, end: 20110701
  31. THYROXIN [Concomitant]
     Indication: HYPOTHYROIDISM
     Dosage: 50 MICROGRAM
     Route: 048
  32. SIMETHICONE [Concomitant]
     Route: 048
  33. METOCLOPRAMIDE [Concomitant]
     Dosage: 30 MILLIGRAM
     Route: 041
     Dates: start: 20110602, end: 20110615
  34. APREPITAN [Concomitant]
     Dosage: 80 MILLIGRAM
     Route: 048
     Dates: start: 20110618, end: 20110619
  35. APREPITAN [Concomitant]
     Dosage: 80 MILLIGRAM
     Route: 048
     Dates: start: 20110623, end: 20110624
  36. CEPHALEXIN [Concomitant]
     Dosage: 4 GRAM
     Route: 048
     Dates: start: 20110617, end: 20110621
  37. FUROSEMIDE [Concomitant]
     Route: 041
     Dates: start: 20110702, end: 20110702
  38. TROPISETRON [Concomitant]
     Indication: NAUSEA
     Dosage: 5 MILLIGRAM
     Route: 041
     Dates: start: 20110630, end: 20110707
  39. OXYCONTIN [Concomitant]
     Dosage: 10 MILLIGRAM
     Route: 048
     Dates: start: 20110627
  40. XALACOM [Concomitant]
     Dosage: 1 DROPS
     Route: 047
  41. BRIMONIDINE TARTRATE [Concomitant]
     Dosage: 2 DROPS
     Route: 047
  42. ALLOPURINOL [Concomitant]
     Indication: PROPHYLAXIS
     Dosage: 300 MILLIGRAM
     Route: 048
     Dates: start: 20110601, end: 20110623
  43. ACYCLOVIR [Concomitant]
     Indication: INFECTION PROPHYLAXIS
     Dosage: 800 MILLIGRAM
     Route: 048
     Dates: start: 20110611, end: 20110707
  44. URAL [Concomitant]
     Dosage: 4 DOSAGE FORMS
     Route: 048
     Dates: start: 20110618, end: 20110623
  45. CEFEPIME [Concomitant]
     Indication: FEBRILE NEUTROPENIA
     Dosage: 6 GRAM
     Route: 041
     Dates: start: 20110622, end: 20110622
  46. GENTAMICIN [Concomitant]
     Dosage: 200 MILLIGRAM
     Route: 041
     Dates: start: 20110624, end: 20110624
  47. FUROSEMIDE [Concomitant]
     Dosage: 20 MILLIGRAM
     Route: 041
     Dates: start: 20110705, end: 20110705
  48. INTRALIPID 10% [Concomitant]
     Indication: MALNUTRITION
     Dosage: 4000 MILLILITER
     Route: 041
     Dates: start: 20110629, end: 20110706
  49. ACETAMINOPHEN [Concomitant]
     Indication: PAIN
     Dosage: 4 GRAM
     Route: 048
     Dates: end: 20110606
  50. ESOMEPRAZOLE MAGNESIUM [Concomitant]
     Indication: GASTROOESOPHAGEAL REFLUX DISEASE
     Dosage: 20 MILLIGRAM
     Route: 048
  51. COLOXYL [Concomitant]
     Indication: CONSTIPATION
     Dosage: 2 DOSAGE FORMS
     Route: 048
     Dates: start: 20110602, end: 20110622
  52. PROCHLORPERAZINE [Concomitant]
     Indication: NAUSEA
     Dosage: 5-10 MG
     Route: 048
     Dates: start: 20110606
  53. URAL [Concomitant]
     Indication: URINE ABNORMALITY
     Route: 048
     Dates: start: 20110617, end: 20110627
  54. FUROSEMIDE [Concomitant]
     Dosage: 40 MILLIGRAM
     Route: 041
     Dates: start: 20110706, end: 20110707
  55. METRONIDAZOLE [Concomitant]
     Dosage: 1200 MILLIGRAM
     Route: 048
     Dates: start: 20110627, end: 20110630
  56. SYNTHAMIN WITH ELECTROLYTES [Concomitant]
     Indication: MALNUTRITION
     Dosage: 4000 MILLIGRAM/MILLILITERS
     Route: 041
     Dates: start: 20110629, end: 20110706
  57. CALCIUM ACETATE [Concomitant]
     Indication: BONE DISORDER
     Dosage: 600 MILLIGRAM
     Route: 048
     Dates: end: 20110606
  58. OXYCODONE HCL [Concomitant]
     Indication: PAIN
     Dosage: 20 MILLIGRAM
     Route: 048
     Dates: start: 20110601, end: 20110703
  59. SENNA [Concomitant]
     Indication: CONSTIPATION
     Dosage: 2 DOSAGE FORMS
     Route: 048
     Dates: start: 20110602, end: 20110622
  60. PROCHLORPERAZINE [Concomitant]
     Dosage: 37.5 MILLIGRAM
     Route: 041
     Dates: start: 20110607, end: 20110608
  61. CYCLIZINE [Concomitant]
     Dosage: 150 MILLIGRAM
     Route: 048
     Dates: start: 20110617
  62. APREPITAN [Concomitant]
     Dosage: 125 MILLIGRAM
     Route: 048
     Dates: start: 20110622, end: 20110622
  63. GENTAMICIN [Concomitant]
     Indication: SEPSIS
     Dosage: 300 MILLIGRAM
     Route: 041
     Dates: start: 20110623, end: 20110623
  64. FUROSEMIDE [Concomitant]
     Indication: OEDEMA
     Dosage: 20 MILLIGRAM
     Route: 048
     Dates: start: 20110624, end: 20110629
  65. FUROSEMIDE [Concomitant]
     Route: 041
     Dates: start: 20110630, end: 20110630
  66. FUROSEMIDE [Concomitant]
     Dosage: 40 MILLIGRAM
     Route: 041
     Dates: start: 20110704, end: 20110704
  67. LORAZEPAM [Concomitant]
     Indication: NAUSEA
     Dosage: 1 MILLIGRAM
     Route: 060
     Dates: start: 20110630, end: 20110707

REACTIONS (1)
  - HYPOXIA [None]
